FAERS Safety Report 9424850 (Version 1)
Quarter: 2013Q3

REPORT INFORMATION
  Report Type: Spontaneous
  Country: US (occurrence: US)
  Receive Date: 20130729
  Receipt Date: 20130729
  Transmission Date: 20140515
  Serious: Yes (Other)
  Sender: FDA-Public Use
  Company Number: US-PFIZER INC-2013217423

PATIENT
  Age: 54 Year
  Sex: Female

DRUGS (1)
  1. XELJANZ [Suspect]
     Dosage: 5 MG , 2X/DAY (FOR A TOTAL OF 12 PILLS)
     Route: 048
     Dates: start: 20130708, end: 20130714

REACTIONS (2)
  - Rash [Unknown]
  - Headache [Unknown]
